FAERS Safety Report 11747729 (Version 2)
Quarter: 2016Q1

REPORT INFORMATION
  Report Type: Report from Study
  Country: JP (occurrence: JP)
  Receive Date: 20151117
  Receipt Date: 20160222
  Transmission Date: 20160525
  Serious: Yes (Other)
  Sender: FDA-Public Use
  Company Number: JP-PFIZER INC-2015108945

PATIENT
  Age: 47 Year
  Sex: Female

DRUGS (1)
  1. SIROLIMUS. [Suspect]
     Active Substance: SIROLIMUS
     Dosage: UNK

REACTIONS (8)
  - Gastritis haemorrhagic [Recovered/Resolved]
  - Bronchitis [Recovered/Resolved]
  - Gastritis erosive [Recovered/Resolved]
  - Rash [Recovering/Resolving]
  - Upper respiratory tract inflammation [Recovered/Resolved]
  - Constipation [Recovering/Resolving]
  - Stomatitis [Recovering/Resolving]
  - Weight decreased [Not Recovered/Not Resolved]

NARRATIVE: CASE EVENT DATE: 20150107
